FAERS Safety Report 20236146 (Version 3)
Quarter: 2022Q3

REPORT INFORMATION
  Report Type: Report from Study
  Country: JP (occurrence: JP)
  Receive Date: 20211228
  Receipt Date: 20220803
  Transmission Date: 20221027
  Serious: Yes (Death, Other)
  Sender: FDA-Public Use
  Company Number: JP-ORPHANEU-2021005401

PATIENT

DRUGS (3)
  1. PASIREOTIDE [Suspect]
     Active Substance: PASIREOTIDE
     Indication: Pituitary-dependent Cushing^s syndrome
     Dosage: 10 MILLIGRAM
     Route: 030
     Dates: start: 20190307, end: 20211118
  2. METOPIRON [METYRAPONE] [Concomitant]
     Indication: Pituitary-dependent Cushing^s syndrome
     Dosage: 750 MILLIGRAM, QD
     Route: 048
     Dates: end: 20190724
  3. METOPIRON [METYRAPONE] [Concomitant]
     Dosage: 250 MILLIGRAM, QD
     Route: 048
     Dates: start: 20190725

REACTIONS (1)
  - Cerebral haemorrhage [Fatal]
